FAERS Safety Report 10018732 (Version 1)
Quarter: 2014Q1

REPORT INFORMATION
  Report Type: Spontaneous
  Country: US (occurrence: None)
  Receive Date: 20140314
  Receipt Date: 20140314
  Transmission Date: 20141002
  Serious: Yes (Other)
  Sender: FDA-Public Use
  Company Number: None

PATIENT
  Age: 42 Year
  Sex: Female
  Weight: 97.52 kg

DRUGS (1)
  1. TRAMADOL 50MG [Suspect]
     Indication: ARTHRALGIA
     Dosage: 1-2 TABS EVERY 6 AS NEEDED AS NEEDED TAKEN BY MOUTH
     Route: 048

REACTIONS (3)
  - Insomnia [None]
  - Nausea [None]
  - Syncope [None]
